FAERS Safety Report 18896390 (Version 2)
Quarter: 2021Q1

REPORT INFORMATION
  Report Type: Spontaneous
  Country: US (occurrence: US)
  Receive Date: 20210215
  Receipt Date: 20210226
  Transmission Date: 20210420
  Serious: No
  Sender: FDA-Public Use
  Company Number: US-AMGEN-USASP2021019455

PATIENT
  Age: 77 Year
  Sex: Female

DRUGS (4)
  1. ENBREL [Suspect]
     Active Substance: ETANERCEPT
     Dosage: 25 MILLIGRAM
     Route: 065
  2. ENBREL [Suspect]
     Active Substance: ETANERCEPT
     Indication: PRODUCT USED FOR UNKNOWN INDICATION
     Dosage: 25 MILLIGRAM
     Route: 065
     Dates: start: 1999
  3. ENBREL [Suspect]
     Active Substance: ETANERCEPT
     Dosage: 25 MILLIGRAM
     Route: 065
  4. ENBREL [Suspect]
     Active Substance: ETANERCEPT
     Dosage: 25 MILLIGRAM
     Route: 065

REACTIONS (8)
  - Tremor [Unknown]
  - Drug dose omission by device [Unknown]
  - Visual impairment [Unknown]
  - Arthralgia [Unknown]
  - Accidental exposure to product [Unknown]
  - Device use error [Unknown]
  - Injury associated with device [Unknown]
  - Memory impairment [Unknown]

NARRATIVE: CASE EVENT DATE: 2021
